FAERS Safety Report 8583928 (Version 8)
Quarter: 2013Q4

REPORT INFORMATION
  Report Type: Spontaneous
  Country: US (occurrence: US)
  Receive Date: 20120529
  Receipt Date: 20131217
  Transmission Date: 20140711
  Serious: Yes (Hospitalization, Other)
  Sender: FDA-Public Use
  Company Number: US-ROCHE-791899

PATIENT
  Age: 47 Year
  Sex: Female
  Weight: 63.56 kg

DRUGS (1)
  1. ACCUTANE [Suspect]
     Indication: ACNE
     Route: 065
     Dates: start: 200311, end: 200403

REACTIONS (8)
  - Colitis ulcerative [Unknown]
  - Crohn^s disease [Unknown]
  - Small intestinal obstruction [Recovering/Resolving]
  - Depression [Unknown]
  - Inflammatory bowel disease [Unknown]
  - Liposarcoma [Unknown]
  - Polyp [Unknown]
  - Irritable bowel syndrome [Unknown]
